FAERS Safety Report 12973214 (Version 2)
Quarter: 2019Q4

REPORT INFORMATION
  Report Type: Spontaneous
  Country: FR (occurrence: FR)
  Receive Date: 20161124
  Receipt Date: 20191213
  Transmission Date: 20200122
  Serious: Yes (Congenital Anomaly, Other)
  Sender: FDA-Public Use
  Company Number: PHHY2016FR159255

PATIENT
  Age: 2 Month
  Sex: Male

DRUGS (4)
  1. ALENDRONATE [Suspect]
     Active Substance: ALENDRONATE SODIUM
     Indication: FOETAL EXPOSURE DURING PREGNANCY
     Dosage: MATERNAL DOSE: UNK
     Route: 064
  2. SODIUM ALGINATE [Suspect]
     Active Substance: SODIUM ALGINATE
     Indication: REFLUX GASTRITIS
     Dosage: UNK
     Route: 065
  3. ESOMEPRAZOLE. [Suspect]
     Active Substance: ESOMEPRAZOLE MAGNESIUM
     Indication: REFLUX GASTRITIS
     Dosage: 1 MG/KG, QD
     Route: 065
  4. GAVISCON [Suspect]
     Active Substance: ALUMINUM HYDROXIDE\MAGNESIUM CARBONATE
     Indication: REFLUX GASTRITIS
     Dosage: UNK
     Route: 065

REACTIONS (7)
  - Premature baby [Unknown]
  - Foetal exposure during pregnancy [Unknown]
  - Hypophosphataemia [Recovered/Resolved]
  - Hypercalciuria [Recovered/Resolved]
  - Hypophosphataemic osteomalacia [Recovered/Resolved]
  - Blood parathyroid hormone decreased [Recovered/Resolved]
  - Craniotabes [Recovered/Resolved]
